FAERS Safety Report 7901060-3 (Version None)
Quarter: 2011Q4

REPORT INFORMATION
  Report Type: 
  Country: None (occurrence: None)
  Receive Date: 20111108
  Receipt Date: 20111027
  Transmission Date: 20120403
  Serious: Yes (Other)
  Sender: FDA-Public Use
  Company Number: IE-SANOFI-AVENTIS-2011SA070925

PATIENT
  Age: 64 Year
  Sex: Male

DRUGS (8)
  1. VIVIDRIN [Concomitant]
     Route: 065
  2. WARFARIN SODIUM [Concomitant]
     Route: 048
  3. ATECOR [Concomitant]
     Route: 048
  4. MULTAQ [Suspect]
     Indication: ARRHYTHMIA
     Route: 048
     Dates: start: 20100727, end: 20100817
  5. EZETIMIBE [Concomitant]
     Route: 048
  6. VENTOLIN [Concomitant]
     Route: 048
  7. PULMICORT [Concomitant]
     Route: 048
  8. LEXAPRO [Concomitant]
     Route: 048

REACTIONS (8)
  - DYSPNOEA [None]
  - DISORIENTATION [None]
  - HYPOTENSION [None]
  - DIARRHOEA [None]
  - MOBILITY DECREASED [None]
  - DIZZINESS [None]
  - ASTHENIA [None]
  - MALAISE [None]
